FAERS Safety Report 6497310-3 (Version None)
Quarter: 2009Q4

REPORT INFORMATION
  Report Type: 
  Country: None (occurrence: None)
  Receive Date: 20091215
  Receipt Date: 20090914
  Transmission Date: 20100525
  Serious: No
  Sender: FDA-Public Use
  Company Number: A0805375A

PATIENT
  Age: 69 Year
  Sex: Male
  Weight: 81.8 kg

DRUGS (4)
  1. AVODART [Suspect]
     Indication: BENIGN PROSTATIC HYPERPLASIA
     Dosage: 1CAP PER DAY
     Route: 048
     Dates: start: 20081119
  2. LISINOPRIL [Concomitant]
     Dosage: 40MG PER DAY
     Route: 048
     Dates: start: 20060118
  3. LOVASTATIN [Concomitant]
     Indication: BLOOD CHOLESTEROL INCREASED
     Dosage: 40MG PER DAY
     Route: 048
     Dates: start: 20060118
  4. METOPROLOL SUCCINATE [Concomitant]
     Dosage: 100MG PER DAY
     Dates: start: 20060125

REACTIONS (4)
  - DRY MOUTH [None]
  - ILL-DEFINED DISORDER [None]
  - INAPPROPRIATE SCHEDULE OF DRUG ADMINISTRATION [None]
  - QUALITY OF LIFE DECREASED [None]
